FAERS Safety Report 7917483-2 (Version None)
Quarter: 2011Q4

REPORT INFORMATION
  Report Type: 
  Country: None (occurrence: None)
  Receive Date: 20111116
  Receipt Date: 20111109
  Transmission Date: 20120403
  Serious: Yes (Life-Threatening, Other)
  Sender: FDA-Public Use
  Company Number: US-SANOFI-AVENTIS-2011SA074435

PATIENT
  Age: 66 Year
  Sex: Male

DRUGS (3)
  1. PLAVIX [Suspect]
     Route: 048
     Dates: start: 20091201, end: 20110101
  2. PLAVIX [Suspect]
     Route: 048
  3. PLAVIX [Suspect]
     Route: 048
     Dates: start: 20110101

REACTIONS (2)
  - CAROTID ARTERY OCCLUSION [None]
  - CORONARY ARTERY OCCLUSION [None]
